FAERS Safety Report 9112451 (Version 1)
Quarter: 2013Q1

REPORT INFORMATION
  Report Type: Spontaneous
  Country: US (occurrence: US)
  Receive Date: 20130211
  Receipt Date: 20130211
  Transmission Date: 20140127
  Serious: Yes (Other)
  Sender: FDA-Public Use
  Company Number: US-TARO-2013P1001658

PATIENT
  Age: 84 Year
  Sex: Female
  Weight: 68.04 kg

DRUGS (12)
  1. WARFARIN SODIUM TABLETS USP 5MG [Suspect]
  2. WARFARIN SODIUM TABLETS USP 5MG [Suspect]
  3. WARFARIN SODIUM TABLETS USP 5MG [Suspect]
     Route: 048
     Dates: start: 20130121
  4. WARFARIN SODIUM TABLETS USP 5MG [Suspect]
     Route: 048
     Dates: start: 20130121
  5. WARFARIN SODIUM TABLETS USP 5MG [Suspect]
     Route: 048
     Dates: start: 20130121
  6. WARFARIN SODIUM TABLETS USP 5MG [Suspect]
     Route: 048
     Dates: start: 20130121
  7. ATENOLOL [Concomitant]
  8. TRIAMTERENE - HCTZ 37.5 [Concomitant]
  9. FISH OIL [Concomitant]
  10. WOMEN?S MULTI VITAMINS [Concomitant]
  11. VITAMIN C [Concomitant]
  12. PRAVASTATIN SODIUM 40 MG [Concomitant]

REACTIONS (5)
  - International normalised ratio fluctuation [Unknown]
  - International normalised ratio decreased [Not Recovered/Not Resolved]
  - Dyspnoea [Recovered/Resolved]
  - Exercise tolerance decreased [Recovered/Resolved]
  - Mitral valve disease [Recovered/Resolved]
